FAERS Safety Report 6508665-5 (Version None)
Quarter: 2009Q4

REPORT INFORMATION
  Report Type: 
  Country: None (occurrence: None)
  Receive Date: 20091221
  Receipt Date: 20090721
  Transmission Date: 20100525
  Serious: No
  Sender: FDA-Public Use
  Company Number: US-ASTRAZENECA-2009SE05502

PATIENT
  Age: 58 Year
  Sex: Female
  Weight: 95.3 kg

DRUGS (3)
  1. CRESTOR [Suspect]
     Route: 048
  2. CRESTOR [Suspect]
     Route: 048
  3. ZESTRIL [Concomitant]

REACTIONS (1)
  - BLOOD CALCIUM INCREASED [None]
